FAERS Safety Report 14688889 (Version 3)
Quarter: 2018Q2

REPORT INFORMATION
  Report Type: Report from Study
  Country: US (occurrence: US)
  Receive Date: 20180328
  Receipt Date: 20180517
  Transmission Date: 20180711
  Serious: Yes (Hospitalization, Other)
  Sender: FDA-Public Use
  Company Number: US-JNJFOC-20180336317

PATIENT
  Age: 71 Year
  Sex: Male

DRUGS (2)
  1. IMBRUVICA [Suspect]
     Active Substance: IBRUTINIB
     Indication: CHRONIC LYMPHOCYTIC LEUKAEMIA
     Route: 048
     Dates: start: 20171228
  2. IMBRUVICA [Suspect]
     Active Substance: IBRUTINIB
     Indication: CHRONIC LYMPHOCYTIC LEUKAEMIA
     Route: 048
     Dates: start: 2014

REACTIONS (6)
  - Staphylococcal bacteraemia [Recovered/Resolved]
  - Streptococcal bacteraemia [Recovered/Resolved]
  - Skin exfoliation [Unknown]
  - Staphylococcal scalded skin syndrome [Recovered/Resolved]
  - Device related sepsis [Unknown]
  - Hodgkin^s disease [Recovering/Resolving]

NARRATIVE: CASE EVENT DATE: 201712
